FAERS Safety Report 12583660 (Version 1)
Quarter: 2016Q3

REPORT INFORMATION
  Report Type: Spontaneous
  Country: US (occurrence: US)
  Receive Date: 20160722
  Receipt Date: 20160722
  Transmission Date: 20161109
  Serious: Yes (Other)
  Sender: FDA-Public Use
  Company Number: US-ETHYPHARM USA CORP-EY-BP-US-2016-035

PATIENT
  Age: 31 Year
  Sex: Male

DRUGS (17)
  1. HEROIN + METHAMPHETAMINE + MXE [Concomitant]
     Indication: PRODUCT USED FOR UNKNOWN INDICATION
  2. 4-HO-MET [Concomitant]
     Active Substance: 4-HO-MET
     Indication: PRODUCT USED FOR UNKNOWN INDICATION
  3. HEROIN [Concomitant]
     Active Substance: DIACETYLMORPHINE
     Indication: PRODUCT USED FOR UNKNOWN INDICATION
  4. CANNABIS [Concomitant]
     Active Substance: CANNABIS SATIVA SUBSP. INDICA TOP
     Indication: PRODUCT USED FOR UNKNOWN INDICATION
  5. MEO-PCP [Concomitant]
     Indication: PRODUCT USED FOR UNKNOWN INDICATION
  6. SUBUTEX [Suspect]
     Active Substance: BUPRENORPHINE HYDROCHLORIDE
     Route: 060
  7. VALIUM [Concomitant]
     Active Substance: DIAZEPAM
     Indication: PRODUCT USED FOR UNKNOWN INDICATION
  8. SUBUTEX [Suspect]
     Active Substance: BUPRENORPHINE HYDROCHLORIDE
     Indication: PRODUCT USED FOR UNKNOWN INDICATION
  9. ALBUTEROL INHALER [Concomitant]
     Active Substance: ALBUTEROL
     Indication: ASTHMA
  10. ETIZOLAM [Concomitant]
     Active Substance: ETIZOLAM
     Indication: PRODUCT USED FOR UNKNOWN INDICATION
  11. METHOXETAMINE (MXE) [Suspect]
     Active Substance: METHOXETAMINE
     Indication: PRODUCT USED FOR UNKNOWN INDICATION
  12. LSD [Concomitant]
     Active Substance: LYSERGIDE
     Indication: PRODUCT USED FOR UNKNOWN INDICATION
  13. KETAMINE [Suspect]
     Active Substance: KETAMINE
     Indication: PRODUCT USED FOR UNKNOWN INDICATION
  14. XANAX [Concomitant]
     Active Substance: ALPRAZOLAM
     Indication: PRODUCT USED FOR UNKNOWN INDICATION
  15. CANNABIS INDICA [Concomitant]
  16. ACO-DMT [Concomitant]
     Indication: PRODUCT USED FOR UNKNOWN INDICATION
  17. BENZOS [Concomitant]
     Active Substance: BENZODIAZEPINE
     Indication: PRODUCT USED FOR UNKNOWN INDICATION

REACTIONS (6)
  - Intentional product misuse [Unknown]
  - Drug dependence [Unknown]
  - Splenic infection [Unknown]
  - Intentional product use issue [Unknown]
  - Cystitis [None]
  - Potentiating drug interaction [Unknown]
